FAERS Safety Report 18462471 (Version 1)
Quarter: 2020Q4

REPORT INFORMATION
  Report Type: Spontaneous
  Country: US (occurrence: US)
  Receive Date: 20201103
  Receipt Date: 20201103
  Transmission Date: 20210114
  Serious: No
  Sender: FDA-Public Use
  Company Number: None

PATIENT
  Age: 31 Year
  Sex: Female

DRUGS (2)
  1. VYVANSE [Suspect]
     Active Substance: LISDEXAMFETAMINE DIMESYLATE
     Indication: ATTENTION DEFICIT HYPERACTIVITY DISORDER
     Dosage: ?          QUANTITY:1 CAPSULE(S);OTHER ROUTE:MOUTH?
  2. VYVANSE [Suspect]
     Active Substance: LISDEXAMFETAMINE DIMESYLATE
     Indication: LEARNING DISABILITY
     Dosage: ?          QUANTITY:1 CAPSULE(S);OTHER ROUTE:MOUTH?

REACTIONS (2)
  - Drug ineffective [None]
  - Manufacturing materials issue [None]

NARRATIVE: CASE EVENT DATE: 20200701
